FAERS Safety Report 11182740 (Version 6)
Quarter: 2016Q2

REPORT INFORMATION
  Report Type: Report from Study
  Country: TW (occurrence: TW)
  Receive Date: 20150611
  Receipt Date: 20160627
  Transmission Date: 20160815
  Serious: No
  Sender: FDA-Public Use
  Company Number: PHHY2015TW059566

PATIENT
  Age: 38 Year
  Sex: Male

DRUGS (2)
  1. TASIGNA [Suspect]
     Active Substance: NILOTINIB
     Dosage: 300 OT (UNIT NOT SPECIFIED)
     Route: 048
     Dates: start: 20150406, end: 20150503
  2. TASIGNA [Suspect]
     Active Substance: NILOTINIB
     Indication: CHRONIC MYELOID LEUKAEMIA
     Dosage: 600 OT (UNIT NOT SPECIFIED)
     Route: 048
     Dates: start: 20141222, end: 20150125

REACTIONS (2)
  - Rash [Recovered/Resolved]
  - Platelet count decreased [Not Recovered/Not Resolved]

NARRATIVE: CASE EVENT DATE: 20150105
